FAERS Safety Report 8773748 (Version 2)
Quarter: 2013Q4

REPORT INFORMATION
  Report Type: Report from Study
  Country: US (occurrence: US)
  Receive Date: 20120907
  Receipt Date: 20131115
  Transmission Date: 20140711
  Serious: Yes (Hospitalization, Other)
  Sender: FDA-Public Use
  Company Number: US-ASTRAZENECA-2012SE65453

PATIENT
  Age: 20 Month
  Sex: Male

DRUGS (1)
  1. LISINOPRIL [Suspect]
     Dosage: 120 MG
     Route: 048

REACTIONS (2)
  - Accidental overdose [Unknown]
  - Hypotension [Unknown]
